FAERS Safety Report 7918710-8 (Version None)
Quarter: 2011Q4

REPORT INFORMATION
  Report Type: 
  Country: None (occurrence: None)
  Receive Date: 20111116
  Receipt Date: 20111114
  Transmission Date: 20120403
  Serious: Yes (Death, Other)
  Sender: FDA-Public Use
  Company Number: US-ELI_LILLY_AND_COMPANY-US201111004219

PATIENT
  Sex: Female

DRUGS (3)
  1. EFFIENT [Suspect]
     Dosage: 10 MG, QD
     Dates: start: 20110113, end: 20111107
  2. LISINOPRIL [Concomitant]
     Indication: BLOOD PRESSURE
     Dosage: 40 MG, QD
  3. METOPROLOL TARTRATE [Concomitant]
     Indication: BLOOD PRESSURE
     Dosage: 50 MG, QD

REACTIONS (3)
  - FALL [None]
  - MYOCARDIAL INFARCTION [None]
  - ANKLE FRACTURE [None]
